FAERS Safety Report 4984365-8 (Version None)
Quarter: 2006Q2

REPORT INFORMATION
  Report Type: 
  Country: None (occurrence: None)
  Receive Date: 20060420
  Receipt Date: 20060411
  Transmission Date: 20061013
  Serious: Yes (Life-Threatening)
  Sender: FDA-Public Use
  Company Number: OMPQ-NO-0602S-0077

PATIENT
  Age: 75 Year
  Sex: Male
  Weight: 87.9 kg

DRUGS (15)
  1. OMNIPAQUE 140 [Suspect]
     Indication: NEUROGENIC BLADDER
     Dosage: 50 ML, SINGLE DOSE, I.V.
     Route: 042
     Dates: start: 20051117, end: 20051117
  2. CEFOTIAM HYDROCHLORIDE (PANSPORIN) [Concomitant]
  3. ACETYLSALICYLIC ACID (BAYASPIRIN) [Concomitant]
  4. LASIX [Concomitant]
  5. ALLOPURINOL [Concomitant]
  6. POTASSIUM CHLORIDE (SLOW-K) [Concomitant]
  7. DIOVAN [Concomitant]
  8. ISOSORBIDE MONONITRATE (ITOROL) [Concomitant]
  9. NIFEDIPINE (ADALAT L) [Concomitant]
  10. PRAZOSIN HCL [Concomitant]
  11. BETHANECHOL CHLORIDE (BESACOLIN) [Concomitant]
  12. MAGNESIUM OXIDE (MAGLAX) [Concomitant]
  13. SENNOSIDE A+B (FORSENID) [Concomitant]
  14. NITRAZEPAM (NELBON) [Concomitant]
  15. SODIUM CHLORIDE (SEISHOKU) [Concomitant]

REACTIONS (12)
  - ANAPHYLACTOID REACTION [None]
  - BLOOD PRESSURE DIASTOLIC DECREASED [None]
  - BLOOD PRESSURE INCREASED [None]
  - DEPRESSED LEVEL OF CONSCIOUSNESS [None]
  - DISSEMINATED INTRAVASCULAR COAGULATION [None]
  - ERYTHEMA [None]
  - FEELING HOT [None]
  - FLUSHING [None]
  - HERPES SIMPLEX [None]
  - SHOCK [None]
  - TACHYCARDIA [None]
  - URINARY RETENTION [None]
